FAERS Safety Report 10740959 (Version 1)
Quarter: 2015Q1

REPORT INFORMATION
  Report Type: Spontaneous
  Country: DK (occurrence: None)
  Receive Date: 20150123
  Receipt Date: 20150123
  Transmission Date: 20150721
  Serious: Yes (Death, Other)
  Sender: FDA-Public Use
  Company Number: 2015022709

PATIENT
  Age: 86 Year
  Sex: Female
  Weight: 48 kg

DRUGS (2)
  1. MAREVAN (WARFARIN SODIUM) [Suspect]
     Active Substance: WARFARIN SODIUM
     Indication: DEEP VEIN THROMBOSIS
     Route: 048
     Dates: start: 20141231
  2. FRAGMIN [Suspect]
     Active Substance: DALTEPARIN SODIUM
     Indication: DEEP VEIN THROMBOSIS
     Dosage: 10000 IU 1X/DAY (STRENGTH: 12.500)
     Dates: start: 20141231, end: 20150104

REACTIONS (3)
  - Haemorrhage intracranial [None]
  - Intracranial pressure increased [None]
  - Depressed level of consciousness [None]

NARRATIVE: CASE EVENT DATE: 20150104
